FAERS Safety Report 21757918 (Version 1)
Quarter: 2022Q4

REPORT INFORMATION
  Report Type: Spontaneous
  Country: US (occurrence: None)
  Receive Date: 20221221
  Receipt Date: 20221221
  Transmission Date: 20230113
  Serious: No
  Sender: FDA-Public Use
  Company Number: US-ROCHE-3102032

PATIENT
  Age: 75 Year
  Sex: Male
  Weight: 81.720 kg

DRUGS (10)
  1. ACTIVASE [Suspect]
     Active Substance: ALTEPLASE
     Indication: Cerebral infarction
     Dosage: ONGOING: NO
     Route: 042
     Dates: start: 20220517, end: 20220517
  2. ACTIVASE [Suspect]
     Active Substance: ALTEPLASE
  3. ASPIRIN [Concomitant]
     Active Substance: ASPIRIN
     Route: 048
  4. LIPITOR [Concomitant]
     Active Substance: ATORVASTATIN CALCIUM
     Dosage: BEDTIME
     Route: 048
  5. PLAVIX [Concomitant]
     Active Substance: CLOPIDOGREL BISULFATE
     Dosage: 2 TABLETS (150 MG) ONCE DAILY ;
     Route: 048
  6. HEPARIN [Concomitant]
     Active Substance: HEPARIN SODIUM
     Dosage: 5000 UNITS/1 ML X2 (TOTAL OF 10,000 UNITS) EVERY 12 HOURS
  7. HYDRALAZINE [Concomitant]
     Active Substance: HYDRALAZINE HYDROCHLORIDE
     Route: 042
  8. HUMALOG [Concomitant]
     Active Substance: INSULIN LISPRO
     Dosage: TID BEFORE MEALS AND AT BEDTIME ;
     Route: 058
  9. ZOFRAN [Concomitant]
     Active Substance: ONDANSETRON HYDROCHLORIDE
     Dosage: PRN Q 8 HOURS
     Route: 048
  10. DEXTROSE [Concomitant]
     Active Substance: DEXTROSE
     Dosage: 25 GRAMS IN 50 ML IV PUSH PRN ;

REACTIONS (3)
  - Treatment delayed [Unknown]
  - Device issue [Unknown]
  - No adverse event [Unknown]

NARRATIVE: CASE EVENT DATE: 20220517
